FAERS Safety Report 17336451 (Version 1)
Quarter: 2020Q1

REPORT INFORMATION
  Report Type: Spontaneous
  Country: AT (occurrence: AT)
  Receive Date: 20200128
  Receipt Date: 20200128
  Transmission Date: 20200409
  Serious: Yes (Congenital Anomaly)
  Sender: FDA-Public Use
  Company Number: AT-TAKEDA-2020TUS004718

PATIENT
  Sex: Female
  Weight: 3.35 kg

DRUGS (1)
  1. ENTYVIO [Suspect]
     Active Substance: VEDOLIZUMAB
     Indication: PRODUCT USED FOR UNKNOWN INDICATION
     Dosage: UNK
     Route: 063
     Dates: start: 20160224, end: 20160321

REACTIONS (2)
  - Foetal exposure during pregnancy [Unknown]
  - Kidney duplex [Unknown]
